FAERS Safety Report 20533442 (Version 1)
Quarter: 2022Q1

REPORT INFORMATION
  Report Type: Report from Study
  Country: US (occurrence: US)
  Receive Date: 20220301
  Receipt Date: 20220301
  Transmission Date: 20220423
  Serious: No
  Sender: FDA-Public Use
  Company Number: US-INCYTE CORPORATION-2022IN000554

PATIENT

DRUGS (1)
  1. JAKAFI [Suspect]
     Active Substance: RUXOLITINIB
     Indication: Myelofibrosis
     Dosage: 15MG QAM, 20MG QPM
     Route: 048
     Dates: start: 20200703

REACTIONS (2)
  - Incorrect dose administered [Unknown]
  - Product dose omission issue [Unknown]
